FAERS Safety Report 11480880 (Version 1)
Quarter: 2015Q3

REPORT INFORMATION
  Report Type: Spontaneous
  Country: JP (occurrence: JP)
  Receive Date: 20150909
  Receipt Date: 20150909
  Transmission Date: 20151125
  Serious: Yes (Other)
  Sender: FDA-Public Use
  Company Number: JP-BRISTOL-MYERS SQUIBB COMPANY-BMS-2015-045210

PATIENT
  Age: 60 Year
  Sex: Male

DRUGS (11)
  1. ERBITUX [Suspect]
     Active Substance: CETUXIMAB
     Dosage: 250 MG/M2, QWK
     Route: 041
     Dates: start: 20150310, end: 20150317
  2. DOCETAXEL. [Concomitant]
     Active Substance: DOCETAXEL
     Indication: SQUAMOUS CELL CARCINOMA OF HEAD AND NECK
     Dosage: 75 MG/M2, Q3WK
     Route: 041
     Dates: start: 20150303, end: 20150303
  3. CISPLATIN. [Concomitant]
     Active Substance: CISPLATIN
     Indication: SQUAMOUS CELL CARCINOMA OF HEAD AND NECK
     Dosage: 75 MG/M2, Q3WK
     Route: 041
     Dates: start: 20150303, end: 20150303
  4. ERBITUX [Suspect]
     Active Substance: CETUXIMAB
     Dosage: 250 MG/M2, QWK
     Route: 041
     Dates: start: 20150324, end: 20150407
  5. DOCETAXEL. [Concomitant]
     Active Substance: DOCETAXEL
     Dosage: 75 MG/M2, Q3WK
     Route: 041
     Dates: start: 20150414, end: 20150414
  6. ERBITUX [Suspect]
     Active Substance: CETUXIMAB
     Indication: SQUAMOUS CELL CARCINOMA OF HEAD AND NECK
     Dosage: 400 MG/M2, QWK
     Route: 041
     Dates: start: 20150303, end: 20150303
  7. CISPLATIN. [Concomitant]
     Active Substance: CISPLATIN
     Dosage: 75 MG/M2, Q3WK
     Route: 041
     Dates: start: 20150414, end: 20150414
  8. DOCETAXEL. [Concomitant]
     Active Substance: DOCETAXEL
     Dosage: 75 MG/M2, Q3WK
     Route: 041
     Dates: start: 20150324, end: 20150324
  9. ERBITUX [Suspect]
     Active Substance: CETUXIMAB
     Dosage: 250 MG/M2, QWK
     Route: 041
     Dates: start: 20150414, end: 20150512
  10. ERBITUX [Suspect]
     Active Substance: CETUXIMAB
     Dosage: 250 MG/M2, QWK
     Route: 041
     Dates: start: 20150526, end: 20150630
  11. CISPLATIN. [Concomitant]
     Active Substance: CISPLATIN
     Dosage: 75 MG/M2, Q3WK
     Route: 041
     Dates: start: 20150324, end: 20150324

REACTIONS (18)
  - Cheilitis [Unknown]
  - Radiation skin injury [Unknown]
  - Alopecia [Unknown]
  - Stomatitis [Unknown]
  - Dry mouth [Unknown]
  - Decreased appetite [Unknown]
  - Gastrointestinal tube insertion [Unknown]
  - Dermatitis acneiform [Unknown]
  - Diarrhoea [Unknown]
  - Constipation [Unknown]
  - Laryngeal oedema [Unknown]
  - Dysgeusia [Unknown]
  - Dysphagia [Unknown]
  - Paronychia [Unknown]
  - Nausea [Unknown]
  - Aspiration [Unknown]
  - Pyrexia [Unknown]
  - Conjunctivitis [Unknown]

NARRATIVE: CASE EVENT DATE: 20150619
